FAERS Safety Report 22289467 (Version 1)
Quarter: 2023Q2

REPORT INFORMATION
  Report Type: Spontaneous
  Country: US (occurrence: None)
  Receive Date: 20230505
  Receipt Date: 20230505
  Transmission Date: 20230721
  Serious: No
  Sender: FDA-Public Use
  Company Number: None

PATIENT
  Age: 76 Year
  Sex: Male
  Weight: 78.02 kg

DRUGS (9)
  1. ABIRATERONE ACETATE [Suspect]
     Active Substance: ABIRATERONE ACETATE
     Indication: Prostate cancer
     Dosage: FREQUENCY : DAILY;?
     Route: 048
  2. ADVAIR DISKUS [Concomitant]
     Active Substance: FLUTICASONE PROPIONATE\SALMETEROL XINAFOATE
  3. ALBUTEROL SULFATE [Concomitant]
     Active Substance: ALBUTEROL SULFATE
  4. CASODEX [Concomitant]
     Active Substance: BICALUTAMIDE
  5. COUMADIN [Concomitant]
     Active Substance: WARFARIN SODIUM
  6. COZAAR [Concomitant]
     Active Substance: LOSARTAN POTASSIUM
  7. FINASTERIDE [Concomitant]
     Active Substance: FINASTERIDE
  8. PREDNISONE [Concomitant]
     Active Substance: PREDNISONE
  9. SINGULAIR [Concomitant]
     Active Substance: MONTELUKAST SODIUM

REACTIONS (2)
  - Disease progression [None]
  - Therapy cessation [None]
